FAERS Safety Report 9182796 (Version 2)
Quarter: 2013Q2

REPORT INFORMATION
  Report Type: Report from Study
  Country: GB (occurrence: GB)
  Receive Date: 20130322
  Receipt Date: 20130412
  Transmission Date: 20140414
  Serious: Yes (Hospitalization)
  Sender: FDA-Public Use
  Company Number: GB-PFIZER INC-2013036743

PATIENT
  Age: 68 Year
  Sex: Female
  Weight: 74 kg

DRUGS (1)
  1. CELECOXIB [Suspect]
     Indication: OSTEOARTHRITIS
     Dosage: 100 MG, ONCE EVERY 2 DAY
     Route: 048
     Dates: start: 20120628

REACTIONS (1)
  - Lung neoplasm malignant [Unknown]
